FAERS Safety Report 17599782 (Version 2)
Quarter: 2020Q2

REPORT INFORMATION
  Report Type: Spontaneous
  Country: IT (occurrence: IT)
  Receive Date: 20200330
  Receipt Date: 20200507
  Transmission Date: 20200713
  Serious: Yes (Life-Threatening)
  Sender: FDA-Public Use
  Company Number: IT-MYLANLABS-2020M1032429

PATIENT
  Age: 75 Year
  Sex: Female
  Weight: 70 kg

DRUGS (2)
  1. MACLADIN [Interacting]
     Active Substance: CLARITHROMYCIN
     Indication: BRONCHITIS
     Dosage: 1000 MILLIGRAM, QD
     Route: 048
     Dates: start: 20200125, end: 20200129
  2. QUETIAPINA MYLAN 50 MG COMPRIMIDOS DE LIBERACI?N PROLONGADA EFG [Suspect]
     Active Substance: QUETIAPINE FUMARATE
     Indication: DEMENTIA
     Dosage: 150 MILLIGRAM, QD
     Route: 048
     Dates: start: 20190611, end: 20200129

REACTIONS (3)
  - Altered state of consciousness [Recovered/Resolved]
  - Hypersomnia [Recovered/Resolved]
  - Drug interaction [Unknown]

NARRATIVE: CASE EVENT DATE: 20200128
